FAERS Safety Report 8385603-4 (Version None)
Quarter: 2012Q2

REPORT INFORMATION
  Report Type: 
  Country: None (occurrence: None)
  Receive Date: 20120525
  Receipt Date: 20120522
  Transmission Date: 20120825
  Serious: No
  Sender: FDA-Public Use
  Company Number: US-PFIZER INC-2012124446

PATIENT
  Sex: Male
  Weight: 77.098 kg

DRUGS (2)
  1. TOPROL-XL [Concomitant]
     Indication: BLOOD PRESSURE ABNORMAL
     Dosage: 100 MG, 2X/DAY
  2. TOVIAZ [Suspect]
     Indication: URINARY INCONTINENCE
     Dosage: 4 MG, DAILY
     Route: 048
     Dates: start: 20120401, end: 20120501

REACTIONS (3)
  - RASH [None]
  - DRUG INEFFECTIVE [None]
  - PRURITUS [None]
